FAERS Safety Report 21504479 (Version 2)
Quarter: 2023Q1

REPORT INFORMATION
  Report Type: Spontaneous
  Country: JP (occurrence: JP)
  Receive Date: 20221025
  Receipt Date: 20230203
  Transmission Date: 20230417
  Serious: Yes (Death, Other)
  Sender: FDA-Public Use
  Company Number: JP-JAZZ-2022-JP-033539

PATIENT
  Age: 1 Year
  Sex: Male
  Weight: 11.9 kg

DRUGS (3)
  1. DEFITELIO [Suspect]
     Active Substance: DEFIBROTIDE SODIUM
     Indication: Venoocclusive liver disease
     Dosage: 25 MILLIGRAM/KILOGRAM/DAILY
     Route: 042
     Dates: start: 20220908, end: 20220925
  2. VIDAZA [Concomitant]
     Active Substance: AZACITIDINE
     Indication: Acute myeloid leukaemia
     Dosage: UNK
     Dates: start: 20220630
  3. VENETOCLAX [Concomitant]
     Active Substance: VENETOCLAX
     Indication: Product used for unknown indication
     Dosage: UNK
     Dates: start: 202206

REACTIONS (1)
  - Acute myeloid leukaemia [Fatal]
